FAERS Safety Report 4836904-5 (Version None)
Quarter: 2005Q4

REPORT INFORMATION
  Report Type: 
  Country: None (occurrence: None)
  Receive Date: 20051123
  Receipt Date: 20051004
  Transmission Date: 20060501
  Serious: Yes (Hospitalization)
  Sender: FDA-Public Use
  Company Number: US-MERCK-0510USA03119

PATIENT
  Age: 46 Year
  Sex: Male
  Weight: 91 kg

DRUGS (7)
  1. VIOXX [Suspect]
     Route: 048
     Dates: start: 20030204, end: 20031101
  2. CLINDAGEL [Concomitant]
     Route: 065
  3. NORVASC [Concomitant]
     Route: 065
  4. TOPROL-XL [Concomitant]
     Route: 065
  5. MONOPRIL [Concomitant]
     Route: 065
  6. MAXZIDE [Concomitant]
     Route: 065
  7. TYLENOL W/ CODEINE [Concomitant]
     Route: 065

REACTIONS (3)
  - CORONARY ARTERY STENOSIS [None]
  - MYOCARDIAL INFARCTION [None]
  - VENTRICULAR HYPERTROPHY [None]
